FAERS Safety Report 7208029-5 (Version None)
Quarter: 2011Q1

REPORT INFORMATION
  Report Type: 
  Country: None (occurrence: None)
  Receive Date: 20110104
  Receipt Date: 20101230
  Transmission Date: 20110831
  Serious: No
  Sender: FDA-Public Use
  Company Number: US-PFIZER INC-2010181896

PATIENT
  Sex: Female

DRUGS (2)
  1. ZOLOFT [Suspect]
  2. LISINOPRIL [Concomitant]

REACTIONS (1)
  - ABNORMAL DREAMS [None]
